FAERS Safety Report 12239695 (Version 1)
Quarter: 2016Q2

REPORT INFORMATION
  Report Type: Spontaneous
  Country: IN (occurrence: IN)
  Receive Date: 20160405
  Receipt Date: 20160405
  Transmission Date: 20160815
  Serious: Yes (Hospitalization)
  Sender: FDA-Public Use
  Company Number: IN-FRESENIUS KABI-FK201601647

PATIENT
  Age: 35 Year
  Sex: Male

DRUGS (3)
  1. ETOPOSIDE. [Concomitant]
     Active Substance: ETOPOSIDE
  2. BLEOMYCIN [Concomitant]
     Active Substance: BLEOMYCIN SULFATE
  3. CISPLATIN (MANUFACTURER UNKNOWN) [Suspect]
     Active Substance: CISPLATIN
     Indication: CHORIOCARCINOMA
     Route: 065

REACTIONS (2)
  - Myocardial infarction [Recovering/Resolving]
  - Embolism arterial [Recovering/Resolving]
